FAERS Safety Report 19225936 (Version 1)
Quarter: 2021Q2

REPORT INFORMATION
  Report Type: Spontaneous
  Country: US (occurrence: US)
  Receive Date: 20210505
  Receipt Date: 20210505
  Transmission Date: 20210717
  Serious: No
  Sender: FDA-Public Use
  Company Number: US-ROCHE-2686991

PATIENT
  Sex: Female

DRUGS (3)
  1. AVASTIN [Suspect]
     Active Substance: BEVACIZUMAB
     Indication: PRODUCT USED FOR UNKNOWN INDICATION
     Route: 065
  2. SIMVASTATIN. [Suspect]
     Active Substance: SIMVASTATIN
     Indication: PRODUCT USED FOR UNKNOWN INDICATION
     Route: 065
  3. TUCATINIB [Concomitant]
     Active Substance: TUCATINIB

REACTIONS (27)
  - Pain in extremity [Unknown]
  - Fungal infection [Unknown]
  - Diarrhoea [Unknown]
  - Vitamin D decreased [Unknown]
  - Rash [Unknown]
  - Urinary tract infection [Unknown]
  - Blood pressure increased [Unknown]
  - Abdominal pain upper [Unknown]
  - Gait disturbance [Unknown]
  - Ill-defined disorder [Unknown]
  - Nausea [Unknown]
  - Neuralgia [Unknown]
  - Taste disorder [Unknown]
  - Platelet count decreased [Unknown]
  - Abdominal pain lower [Unknown]
  - Gastric disorder [Unknown]
  - Stomatitis [Unknown]
  - Balance disorder [Unknown]
  - Dehydration [Unknown]
  - Haemorrhoids [Unknown]
  - Dry eye [Unknown]
  - Abdominal pain [Unknown]
  - Fatigue [Unknown]
  - Headache [Unknown]
  - Cystitis [Unknown]
  - Night sweats [Unknown]
  - Pain [Unknown]
